FAERS Safety Report 8102840-4 (Version None)
Quarter: 2011Q4

REPORT INFORMATION
  Report Type: 
  Country: None (occurrence: None)
  Receive Date: 20111222
  Receipt Date: 20111109
  Transmission Date: 20120403
  Serious: Yes (Hospitalization)
  Sender: FDA-Public Use
  Company Number: UTC-011267

PATIENT
  Age: 62 Year
  Sex: Male

DRUGS (3)
  1. TYVASO [Suspect]
     Indication: COR PULMONALE CHRONIC
     Dosage: 144 MCG (36 MCG, 4 IN 1 D), INHALATION
     Route: 055
     Dates: start: 20110124
  2. REVATIO (SILDENAFIL CITRATE) (UNKNOWN) [Concomitant]
  3. DIURETICS (DIURETICS) (UNKNOWN) [Concomitant]

REACTIONS (1)
  - HEPATIC ENCEPHALOPATHY [None]
